FAERS Safety Report 7795660-1 (Version None)
Quarter: 2011Q4

REPORT INFORMATION
  Report Type: 
  Country: None (occurrence: None)
  Receive Date: 20111004
  Receipt Date: 20110927
  Transmission Date: 20120403
  Serious: Yes (Hospitalization)
  Sender: FDA-Public Use
  Company Number: JP-GLAXOSMITHKLINE-B0750400A

PATIENT
  Age: 23 Year
  Sex: Male

DRUGS (4)
  1. LAMICTAL [Suspect]
     Indication: BIPOLAR DISORDER
     Dosage: 25MG PER DAY
     Route: 048
     Dates: start: 20110906
  2. GASMOTIN [Concomitant]
     Route: 048
  3. LITHIUM CARBONATE [Concomitant]
     Route: 048
  4. DEPAKENE [Concomitant]

REACTIONS (6)
  - PYREXIA [None]
  - MENINGITIS [None]
  - ECZEMA [None]
  - RASH [None]
  - MALAISE [None]
  - HEPATIC FUNCTION ABNORMAL [None]
